FAERS Safety Report 12585917 (Version 1)
Quarter: 2016Q3

REPORT INFORMATION
  Report Type: Spontaneous
  Country: US (occurrence: US)
  Receive Date: 20160725
  Receipt Date: 20160725
  Transmission Date: 20161109
  Serious: No
  Sender: FDA-Public Use
  Company Number: US-CIPLA LTD.-2016US07005

PATIENT

DRUGS (1)
  1. ZONISAMIDE. [Suspect]
     Active Substance: ZONISAMIDE
     Indication: SEIZURE
     Dosage: UNK
     Route: 048

REACTIONS (6)
  - Alopecia [Unknown]
  - Hyperhidrosis [Unknown]
  - Menopause [Unknown]
  - Seizure [Unknown]
  - Cognitive disorder [Unknown]
  - Pollakiuria [Unknown]
